FAERS Safety Report 8859458 (Version 1)
Quarter: 2012Q4

REPORT INFORMATION
  Report Type: Spontaneous
  Country: DK (occurrence: None)
  Receive Date: 20121023
  Receipt Date: 20121023
  Transmission Date: 20130627
  Serious: Yes (Other)
  Sender: FDA-Public Use
  Company Number: 2012MA012407

PATIENT
  Age: 75 Year
  Sex: Female

DRUGS (10)
  1. ACYCLOVIR [Suspect]
     Indication: SHINGLES
     Route: 048
     Dates: start: 20120910, end: 20120912
  2. VENTOLIN [Concomitant]
  3. SERETIDE [Concomitant]
  4. ALENDRONIC ACID [Concomitant]
  5. PREDNISOLONE [Concomitant]
  6. CETIRIZINE [Concomitant]
  7. ADIZEM-XL [Concomitant]
  8. CLOPIDOGREL [Concomitant]
  9. ATORVASTATIN [Concomitant]
  10. FLUTICASONE [Concomitant]

REACTIONS (4)
  - Malaise [None]
  - Vomiting [None]
  - VIIth nerve paralysis [None]
  - Hepatic enzyme increased [None]
